FAERS Safety Report 15072746 (Version 1)
Quarter: 2018Q2

REPORT INFORMATION
  Report Type: Other
  Country: DE (occurrence: DE)
  Receive Date: 20180627
  Receipt Date: 20180627
  Transmission Date: 20180711
  Serious: No
  Sender: FDA-Public Use
  Company Number: DE-LUPIN PHARMACEUTICALS INC.-2017-03720

PATIENT
  Age: 51 Year
  Sex: Male
  Weight: 101 kg

DRUGS (4)
  1. ATORVASTATIN [Suspect]
     Active Substance: ATORVASTATIN
     Indication: LIPID METABOLISM DISORDER
     Dosage: UNK
     Route: 048
     Dates: start: 2014, end: 2014
  2. SIMVASTATIN. [Suspect]
     Active Substance: SIMVASTATIN
     Indication: LIPID METABOLISM DISORDER
     Dosage: UNK
     Route: 048
     Dates: start: 2014, end: 2014
  3. FLUVASTATIN [Suspect]
     Active Substance: FLUVASTATIN SODIUM
     Indication: LIPID METABOLISM DISORDER
     Dosage: UNK
     Route: 048
     Dates: start: 2014, end: 2014
  4. EZETROL [Suspect]
     Active Substance: EZETIMIBE
     Indication: LIPID METABOLISM DISORDER
     Dosage: UNK
     Route: 048
     Dates: start: 2014, end: 2014

REACTIONS (2)
  - Myalgia [Recovered/Resolved]
  - Blood creatine phosphokinase increased [Recovered/Resolved]

NARRATIVE: CASE EVENT DATE: 2014
